FAERS Safety Report 5782872-1 (Version None)
Quarter: 2008Q2

REPORT INFORMATION
  Report Type: 
  Country: None (occurrence: None)
  Receive Date: 20080620
  Receipt Date: 20080620
  Transmission Date: 20081010
  Serious: No
  Sender: FDA-Public Use
  Company Number: None

PATIENT
  Age: 43 Year
  Sex: Female

DRUGS (1)
  1. WELLBUTRIN XL [Suspect]
     Indication: MAJOR DEPRESSION
     Dosage: 1 TABLET TWICE DAILY BY MOUTH
     Route: 048
     Dates: start: 20080425

REACTIONS (1)
  - POLYMENORRHOEA [None]
